FAERS Safety Report 9871777 (Version 2)
Quarter: 2014Q1

REPORT INFORMATION
  Report Type: Spontaneous
  Country: US (occurrence: US)
  Receive Date: 20140205
  Receipt Date: 20140205
  Transmission Date: 20141002
  Serious: No
  Sender: FDA-Public Use
  Company Number: US-AMGEN-USASP2013090114

PATIENT
  Age: 53 Year
  Sex: Female

DRUGS (17)
  1. NEULASTA [Suspect]
     Indication: PRODUCT USED FOR UNKNOWN INDICATION
     Dosage: UNK
     Route: 065
  2. AVASTIN /01555201/ [Suspect]
     Indication: OVARIAN CANCER
     Dosage: 1450 MG (15 MG/KG, 1 IN 28 D)
     Route: 042
     Dates: start: 20111011
  3. AVASTIN /01555201/ [Suspect]
     Dosage: 970 MG, (10 MG/KG), UNK
     Route: 042
  4. AVASTIN /01555201/ [Suspect]
     Dosage: 975 MG, UNK
     Route: 042
     Dates: start: 20111025
  5. AVASTIN /01555201/ [Suspect]
     Dosage: 975 MG, (15 MG/KG, 1 IN 28 D), UNK
     Route: 042
     Dates: start: 20111025
  6. AVASTIN /01555201/ [Suspect]
     Dosage: 970 MG, Q14 DAY (10 MG/KG)
     Route: 042
     Dates: start: 20111012
  7. AVASTIN /01555201/ [Suspect]
     Dosage: 975 MG, 10 MG/KG (DAYL AND DAY 15)
     Route: 042
     Dates: start: 20111018
  8. AVASTIN /01555201/ [Suspect]
     Dosage: 975 MG, DAY 1 AND DAY 15
     Route: 042
     Dates: start: 20111108
  9. ABRAXANE /01116004/ [Suspect]
     Indication: OVARIAN CANCER
     Dosage: 200 MG DAY 1, 8, 15 EVERY 28 DAYS (100 MG/M2)
     Route: 042
  10. DEXAMETHASONE [Concomitant]
     Dosage: UNK
     Route: 042
  11. ZOFRAN                             /00955301/ [Concomitant]
     Indication: NAUSEA
     Dosage: UNK
     Route: 042
  12. BENADRYL                           /00000402/ [Concomitant]
     Dosage: 25 MG, UNK
     Route: 048
  13. ATIVAN [Concomitant]
     Dosage: 1 MG, UNK
     Route: 040
  14. ALOXI [Concomitant]
     Dosage: 0.25 MG, UNK
     Route: 040
  15. CLONIDINE [Concomitant]
     Dosage: UNK UNK, TID
     Route: 048
  16. ADVIL                              /00109201/ [Concomitant]
     Dosage: UNK
  17. TRAMADOL [Concomitant]
     Dosage: UNK

REACTIONS (10)
  - Fatigue [Unknown]
  - Nausea [Unknown]
  - Vomiting [Unknown]
  - Odynophagia [Unknown]
  - Crepitations [Unknown]
  - Dyspnoea [Unknown]
  - Lacrimation decreased [Unknown]
  - Back pain [Unknown]
  - Ascites [Unknown]
  - Bone pain [Unknown]
